FAERS Safety Report 10254879 (Version 3)
Quarter: 2014Q3

REPORT INFORMATION
  Report Type: Other
  Country: IE (occurrence: IE)
  Receive Date: 20140624
  Receipt Date: 20140724
  Transmission Date: 20150326
  Serious: Yes (Other)
  Sender: FDA-Public Use
  Company Number: IE-SHIRE-IE201403127

PATIENT
  Age: 7 Year
  Sex: Male
  Weight: 31.1 kg

DRUGS (7)
  1. PARACETAMOL [Concomitant]
     Active Substance: ACETAMINOPHEN
     Indication: PREMEDICATION
     Dosage: UNK UNK, UNKNOWN (AS PER AGE/WEIGHT)
     Route: 048
     Dates: start: 20080710
  2. ZYRTEC [Concomitant]
     Active Substance: CETIRIZINE HYDROCHLORIDE
     Indication: PREMEDICATION
     Dosage: 5 MG, 1X/WEEK (ONE HOUR PRIOR TO ERT AND SIX HOURS POST ERT)
     Route: 048
     Dates: start: 20131129
  3. PREDNISONE. [Concomitant]
     Active Substance: PREDNISONE
     Indication: PREMEDICATION
     Dosage: 5 MG, 1X/WEEK (12 HRS PRIOR TO INFUSION)
     Route: 048
     Dates: start: 20140603
  4. PREDNISONE. [Concomitant]
     Active Substance: PREDNISONE
     Dosage: 10 MG, 1X/WEEK (1 HOUR PRIOR TO INFUSION)
     Route: 048
     Dates: start: 20140603
  5. ELAPRASE [Suspect]
     Active Substance: IDURSULFASE
     Dosage: 12 MG, 1X/WEEK
     Route: 041
     Dates: start: 20080710
  6. ELAPRASE [Suspect]
     Active Substance: IDURSULFASE
     Indication: MUCOPOLYSACCHARIDOSIS II
     Dosage: 12 MG, 1X/WEEK
     Route: 041
     Dates: start: 20120330
  7. RANITIDINE [Concomitant]
     Active Substance: RANITIDINE\RANITIDINE HYDROCHLORIDE
     Indication: PREMEDICATION
     Dosage: 100 MG, 1X/WEEK (ONE HOUR PRIOR TO ERT AND SIX HOURS POST ERT)
     Route: 048
     Dates: start: 20131129

REACTIONS (1)
  - Lymphadenopathy [Not Recovered/Not Resolved]

NARRATIVE: CASE EVENT DATE: 201406
